FAERS Safety Report 7930196-6 (Version None)
Quarter: 2011Q4

REPORT INFORMATION
  Report Type: 
  Country: None (occurrence: None)
  Receive Date: 20111121
  Receipt Date: 20111111
  Transmission Date: 20120403
  Serious: Yes (Other)
  Sender: FDA-Public Use
  Company Number: US-BAYER-2011-110189

PATIENT
  Sex: Female

DRUGS (1)
  1. MIRENA [Suspect]
     Indication: ENDOMETRIOSIS
     Dosage: 20 MCG/24HR, UNK
     Route: 015

REACTIONS (3)
  - ABDOMINAL TENDERNESS [None]
  - PELVIC PAIN [None]
  - ACTINOMYCES TEST POSITIVE [None]
